FAERS Safety Report 5723629-7 (Version None)
Quarter: 2008Q2

REPORT INFORMATION
  Report Type: 
  Country: None (occurrence: None)
  Receive Date: 20080429
  Receipt Date: 20080429
  Transmission Date: 20081010
  Serious: No
  Sender: FDA-Public Use
  Company Number: None

PATIENT
  Age: 80 Year
  Sex: Male

DRUGS (1)
  1. DIGITEK 0.25MG BERTEK/AMIDE [Suspect]
     Indication: ARRHYTHMIA
     Dosage: TAKE 1 TAB DAILY
     Dates: start: 20070401

REACTIONS (4)
  - DIZZINESS [None]
  - NASOPHARYNGITIS [None]
  - NAUSEA [None]
  - VOMITING [None]
